FAERS Safety Report 6419777-9 (Version None)
Quarter: 2009Q4

REPORT INFORMATION
  Report Type: 
  Country: None (occurrence: None)
  Receive Date: 20091013
  Receipt Date: 20081125
  Transmission Date: 20100525
  Serious: Yes (Other)
  Sender: FDA-Public Use
  Company Number: 1000001502

PATIENT
  Age: 49 Year
  Sex: Male
  Weight: 85.3216 kg

DRUGS (5)
  1. LEXAPRO [Suspect]
     Indication: DEPRESSION
     Dosage: 10 MG (10 MG, 1 IN 1 D), ORAL
     Route: 048
     Dates: start: 20070502, end: 20070627
  2. DARVOCET-N 100 [Concomitant]
  3. TRAZODONE HCL [Concomitant]
  4. FLONASE [Concomitant]
  5. ASTELIN [Concomitant]

REACTIONS (1)
  - SUICIDAL IDEATION [None]
